FAERS Safety Report 13332685 (Version 1)
Quarter: 2017Q1

REPORT INFORMATION
  Report Type: Spontaneous
  Country: CN (occurrence: CN)
  Receive Date: 20170313
  Receipt Date: 20170313
  Transmission Date: 20170428
  Serious: Yes (Hospitalization, Other)
  Sender: FDA-Public Use
  Company Number: CN-PFIZER INC-2017102603

PATIENT
  Age: 30 Year
  Sex: Male
  Weight: 70 kg

DRUGS (5)
  1. CELEBREX [Suspect]
     Active Substance: CELECOXIB
     Indication: FOOT FRACTURE
     Dosage: 200 MG, 2X/DAY
     Route: 048
     Dates: start: 20170101, end: 20170106
  2. TUOSU [Suspect]
     Active Substance: ORNIDAZOLE
     Indication: FOOT FRACTURE
     Dosage: 0.5 G, 2X/DAY
     Route: 041
     Dates: start: 20170102, end: 20170105
  3. GINKGO BILOBA EXTRACT [Suspect]
     Active Substance: GINKGO
     Indication: FOOT FRACTURE
     Dosage: 70 MG, 1X/DAY
     Route: 041
     Dates: start: 20170101, end: 20170106
  4. SODIUM CHLORIDE. [Concomitant]
     Active Substance: SODIUM CHLORIDE
     Indication: FOOT FRACTURE
     Dosage: 250 ML, 1X/DAY
     Route: 041
     Dates: start: 20170101, end: 20170106
  5. LEVOFLOXACIN. [Suspect]
     Active Substance: LEVOFLOXACIN
     Indication: FOOT FRACTURE
     Dosage: 0.3 G, 2X/DAY
     Route: 041
     Dates: start: 20170101, end: 20170103

REACTIONS (6)
  - Pruritus [Recovered/Resolved]
  - Dysphoria [Not Recovered/Not Resolved]
  - Chest discomfort [Unknown]
  - Tachypnoea [Unknown]
  - Rash [Recovered/Resolved]
  - Anxiety [Not Recovered/Not Resolved]

NARRATIVE: CASE EVENT DATE: 20170103
